FAERS Safety Report 16718424 (Version 3)
Quarter: 2019Q3

REPORT INFORMATION
  Report Type: Report from Study
  Country: FR (occurrence: FR)
  Receive Date: 20190820
  Receipt Date: 20190917
  Transmission Date: 20191005
  Serious: Yes (Death, Life-Threatening, Hospitalization, Other)
  Sender: FDA-Public Use
  Company Number: FR-BRISTOL-MYERS SQUIBB COMPANY-BMS-2019-080378

PATIENT
  Age: 69 Year
  Sex: Male
  Weight: 83 kg

DRUGS (1)
  1. NIVOLUMAB [Suspect]
     Active Substance: NIVOLUMAB
     Indication: HODGKIN^S DISEASE
     Dosage: 240 MILLIGRAM
     Route: 065
     Dates: start: 20190809, end: 20190809

REACTIONS (3)
  - Acute respiratory distress syndrome [Fatal]
  - Renal failure [Not Recovered/Not Resolved]
  - Systemic candida [Not Recovered/Not Resolved]

NARRATIVE: CASE EVENT DATE: 20190809
